FAERS Safety Report 5274075-4 (Version None)
Quarter: 2007Q1

REPORT INFORMATION
  Report Type: 
  Country: None (occurrence: None)
  Receive Date: 20070323
  Receipt Date: 20070315
  Transmission Date: 20070707
  Serious: Yes (Other)
  Sender: FDA-Public Use
  Company Number: GB-MERCK-0703GBR00091

PATIENT
  Age: 80 Year
  Sex: Male
  Weight: 82 kg

DRUGS (7)
  1. SINGULAIR [Suspect]
     Indication: ASTHMA
     Route: 048
     Dates: start: 20060522, end: 20060522
  2. ASPIRIN [Concomitant]
     Indication: HYPERTENSION
     Route: 048
  3. BENDROFLUMETHIAZIDE [Concomitant]
     Indication: HYPERTENSION
     Route: 048
     Dates: start: 20040720
  4. CICLESONIDE [Concomitant]
     Indication: ASTHMA
     Dates: start: 20060111
  5. LERCANIDIPINE [Concomitant]
     Indication: HYPERTENSION
     Route: 048
     Dates: start: 19990819
  6. SALMETEROL [Concomitant]
     Indication: ASTHMA
     Dates: start: 20010319
  7. VENTOLIN [Concomitant]
     Indication: ASTHMA
     Dates: start: 19990621

REACTIONS (3)
  - ASTHMA [None]
  - CHEST DISCOMFORT [None]
  - LUNG DISORDER [None]
